FAERS Safety Report 9282111 (Version 1)
Quarter: 2013Q2

REPORT INFORMATION
  Report Type: Spontaneous
  Country: US (occurrence: None)
  Receive Date: 20130508
  Receipt Date: 20130508
  Transmission Date: 20140414
  Serious: Yes (Other)
  Sender: FDA-Public Use
  Company Number: None

PATIENT
  Age: 67 Year
  Sex: Female
  Weight: 72.2 kg

DRUGS (14)
  1. AZATHIOPRINE [Suspect]
     Indication: LIVER TRANSPLANT
     Route: 048
     Dates: start: 20110413, end: 20110415
  2. ACYCLOVIR [Concomitant]
  3. DOCUSATE [Concomitant]
  4. INSULIN ASPART [Concomitant]
  5. LATANOPROST [Concomitant]
  6. METOPROLOL [Concomitant]
  7. MULTIVITAMIN [Concomitant]
  8. NYSTATIN [Concomitant]
  9. PREDNISONE [Concomitant]
  10. QUETIAPINE [Concomitant]
  11. SULFAMETHOXAZOLE/TRIMETHOPRIM [Concomitant]
  12. TACROLIMUS [Concomitant]
  13. WELCHOL [Suspect]
  14. AZATHIOPRINE [Concomitant]

REACTIONS (1)
  - Platelet count decreased [None]
